FAERS Safety Report 8922712 (Version 2)
Quarter: 2012Q4

REPORT INFORMATION
  Report Type: Spontaneous
  Country: US (occurrence: None)
  Receive Date: 20121115
  Receipt Date: 20121115
  Transmission Date: 20130627
  Serious: Yes (Hospitalization, Other)
  Sender: FDA-Public Use
  Company Number: JPI-P-026018

PATIENT
  Age: 48 Year
  Sex: Female
  Weight: 75.75 kg

DRUGS (11)
  1. XYREM (500 MILLIGRAM/MILLILITERS, SOLUTION) (SODIUM OXYBATE) [Suspect]
     Indication: NARCOLEPSY
     Dosage: 4.5 gm (2.25 gm, 2 in 1 D), Oral
     Dates: start: 20121005
  2. XYREM (500 MILLIGRAM/MILLILITERS, SOLUTION) (SODIUM OXYBATE) [Suspect]
     Indication: EXCESSIVE DAYTIME SLEEPINESS
     Dosage: 4.5 gm (2.25 gm, 2 in 1 D), Oral
     Dates: start: 20121005
  3. ARMODAFINIL [Concomitant]
  4. NITROFURANTOIN [Concomitant]
  5. TRAMADOL [Concomitant]
  6. HYDROXYCHLOROQUINE [Concomitant]
  7. DULOXETINE HYDROCHLORIDE [Concomitant]
  8. LISDEXAMFETAMINE DIMESYLATE [Concomitant]
  9. BUPROPION [Concomitant]
  10. RIZATRIPTAN BENZOATE [Concomitant]
  11. DICLOFENAC [Concomitant]

REACTIONS (5)
  - Sjogren^s syndrome [None]
  - Condition aggravated [None]
  - Cognitive disorder [None]
  - Stress at work [None]
  - Nephrolithiasis [None]
